FAERS Safety Report 18771551 (Version 1)
Quarter: 2021Q1

REPORT INFORMATION
  Report Type: Report from Study
  Country: US (occurrence: US)
  Receive Date: 20210121
  Receipt Date: 20210121
  Transmission Date: 20210419
  Serious: Yes (Other)
  Sender: FDA-Public Use
  Company Number: US-INTRA-CELLULAR THERAPIES, INC.-2021ICT00025

PATIENT
  Age: 2 Decade
  Sex: Male

DRUGS (1)
  1. CAPLYTA [Suspect]
     Active Substance: LUMATEPERONE

REACTIONS (4)
  - Hallucination [Unknown]
  - Psychomotor hyperactivity [Unknown]
  - Insomnia [Unknown]
  - Drug ineffective [Unknown]
